FAERS Safety Report 4715638-1 (Version None)
Quarter: 2005Q3

REPORT INFORMATION
  Report Type: 
  Country: None (occurrence: None)
  Receive Date: 20050715
  Receipt Date: 20050715
  Transmission Date: 20060218
  Serious: Yes (Life-Threatening, Hospitalization, Disabling)
  Sender: FDA-Public Use
  Company Number: None

PATIENT
  Age: 39 Year
  Sex: Male
  Weight: 108.8633 kg

DRUGS (2)
  1. TRILEPTAL [Suspect]
     Dosage: 1/2 2X A DAY FOR 6 DAYS
     Dates: start: 20020515, end: 20020520
  2. TRILEPTAL [Suspect]
     Dosage: 1/2 2X A DAY FOR 6 DAYS
     Dates: start: 20020521, end: 20020521

REACTIONS (9)
  - AMNESIA [None]
  - BRAIN DAMAGE [None]
  - CONFUSIONAL STATE [None]
  - DISORIENTATION [None]
  - HEPATOCELLULAR DAMAGE [None]
  - HEPATOTOXICITY [None]
  - LEGAL PROBLEM [None]
  - NEUROTOXICITY [None]
  - PSYCHOTIC DISORDER [None]
